FAERS Safety Report 10067076 (Version 3)
Quarter: 2015Q1

REPORT INFORMATION
  Report Type: Spontaneous
  Country: BR (occurrence: BR)
  Receive Date: 20140409
  Receipt Date: 20150204
  Transmission Date: 20150720
  Serious: Yes (Hospitalization, Other)
  Sender: FDA-Public Use
  Company Number: BR-AMGEN-BRASP2014025055

PATIENT
  Age: 32 Year
  Sex: Female

DRUGS (2)
  1. ENBREL [Suspect]
     Active Substance: ETANERCEPT
     Indication: PSORIATIC ARTHROPATHY
     Dosage: 50 MG, WEEKLY
     Route: 065
     Dates: start: 20110425, end: 20140320
  2. MERCILON [Suspect]
     Active Substance: DESOGESTREL\ETHINYL ESTRADIOL
     Indication: CONTRACEPTION
     Dosage: UNK
     Route: 065

REACTIONS (7)
  - Psoriatic arthropathy [Unknown]
  - Drug ineffective [Unknown]
  - Rebound psoriasis [Unknown]
  - Hypertension [Unknown]
  - Psoriasis [Unknown]
  - HELLP syndrome [Unknown]
  - Unintended pregnancy [Unknown]

NARRATIVE: CASE EVENT DATE: 20140326
